FAERS Safety Report 12426660 (Version 2)
Quarter: 2017Q1

REPORT INFORMATION
  Report Type: Report from Study
  Country: SE (occurrence: SE)
  Receive Date: 20160601
  Receipt Date: 20170208
  Transmission Date: 20170428
  Serious: Yes (Hospitalization, Other)
  Sender: FDA-Public Use
  Company Number: SE-CELGENEUS-SWE-2015050826

PATIENT

DRUGS (2)
  1. GEMCITABINE [Suspect]
     Active Substance: GEMCITABINE\GEMCITABINE HYDROCHLORIDE
     Indication: PANCREATIC CARCINOMA
     Dosage: 107.1429 MILLIGRAM/SQ. METER
     Route: 041
  2. REVLIMID [Suspect]
     Active Substance: LENALIDOMIDE
     Indication: PANCREATIC CARCINOMA
     Route: 048

REACTIONS (40)
  - Pulmonary embolism [Unknown]
  - Weight decreased [Unknown]
  - Viral infection [Unknown]
  - Somnolence [Unknown]
  - Decreased appetite [Unknown]
  - Fatigue [Unknown]
  - Dysphonia [Unknown]
  - Thrombocytopenia [Unknown]
  - Erythema [Unknown]
  - Dysgeusia [Unknown]
  - Alanine aminotransferase increased [Unknown]
  - Blood bilirubin increased [Unknown]
  - Pruritus [Unknown]
  - Nausea [Unknown]
  - Leukopenia [Unknown]
  - Melaena [Unknown]
  - Anaemia [Unknown]
  - Urticaria [Unknown]
  - Constipation [Unknown]
  - Supraventricular extrasystoles [Unknown]
  - Left ventricular dysfunction [Unknown]
  - Renal failure [Unknown]
  - Deep vein thrombosis [Unknown]
  - Hypothyroidism [Unknown]
  - Myalgia [Unknown]
  - Abdominal pain [Unknown]
  - Dry skin [Unknown]
  - Pyrexia [Unknown]
  - Diarrhoea [Unknown]
  - Hypotension [Unknown]
  - Musculoskeletal pain [Unknown]
  - Neutropenia [Unknown]
  - Dyspnoea [Unknown]
  - Dizziness [Unknown]
  - Drug intolerance [Unknown]
  - Aspartate aminotransferase increased [Unknown]
  - Blood creatinine increased [Unknown]
  - Oedema peripheral [Unknown]
  - Dry mouth [Unknown]
  - Peripheral sensorimotor neuropathy [Unknown]
